FAERS Safety Report 17135603 (Version 1)
Quarter: 2019Q4

REPORT INFORMATION
  Report Type: Spontaneous
  Country: CN (occurrence: CN)
  Receive Date: 20191210
  Receipt Date: 20191210
  Transmission Date: 20200122
  Serious: Yes (Other)
  Sender: FDA-Public Use
  Company Number: CN-BAYER-2019-219644

PATIENT
  Sex: Male

DRUGS (2)
  1. PRAZIQUANTEL. [Suspect]
     Active Substance: PRAZIQUANTEL
     Dosage: 1 G, QD
  2. TRICLABENDAZOLE [Suspect]
     Active Substance: TRICLABENDAZOLE
     Dosage: 2 G, QD

REACTIONS (3)
  - Sudden visual loss [Recovering/Resolving]
  - Retinal toxicity [Recovering/Resolving]
  - Overdose [None]
